FAERS Safety Report 23134227 (Version 2)
Quarter: 2023Q4

REPORT INFORMATION
  Report Type: Spontaneous
  Country: US (occurrence: US)
  Receive Date: 20231101
  Receipt Date: 20231113
  Transmission Date: 20240110
  Serious: Yes (Life-Threatening, Hospitalization)
  Sender: FDA-Public Use
  Company Number: US-TEVA-2023-US-2940263

PATIENT
  Age: 52 Year
  Sex: Female

DRUGS (1)
  1. PREDNISONE [Suspect]
     Active Substance: PREDNISONE
     Indication: COVID-19
     Route: 065

REACTIONS (6)
  - Pneumonia fungal [Unknown]
  - Aspergillus infection [Unknown]
  - Hypoxia [Unknown]
  - Septic shock [Unknown]
  - Diffuse alveolar damage [Unknown]
  - Off label use [Unknown]
